FAERS Safety Report 16500987 (Version 1)
Quarter: 2019Q3

REPORT INFORMATION
  Report Type: Spontaneous
  Country: US (occurrence: US)
  Receive Date: 20190628
  Receipt Date: 20190628
  Transmission Date: 20191004
  Serious: No
  Sender: FDA-Public Use
  Company Number: None

PATIENT
  Age: 51 Year
  Sex: Female
  Weight: 81 kg

DRUGS (1)
  1. SOMADERM GEL [Suspect]
     Active Substance: HOMEOPATHICS
     Indication: ROUTINE HEALTH MAINTENANCE
     Dosage: ?          QUANTITY:1 DROP(S);?
     Route: 061
     Dates: start: 20180830, end: 20190228

REACTIONS (2)
  - Depression [None]
  - Suicidal ideation [None]

NARRATIVE: CASE EVENT DATE: 20180830
